FAERS Safety Report 11367877 (Version 1)
Quarter: 2015Q3

REPORT INFORMATION
  Report Type: Spontaneous
  Country: US (occurrence: None)
  Receive Date: 20150811
  Receipt Date: 20150811
  Transmission Date: 20151125
  Serious: Yes (Hospitalization)
  Sender: FDA-Public Use
  Company Number: None

PATIENT
  Age: 84 Year
  Sex: Female
  Weight: 56.7 kg

DRUGS (12)
  1. FUROSEMIDE. [Concomitant]
     Active Substance: FUROSEMIDE
  2. METAMUCIL [Concomitant]
     Active Substance: PLANTAGO SEED
  3. CARVEDILOL. [Concomitant]
     Active Substance: CARVEDILOL
  4. PRADAXA [Suspect]
     Active Substance: DABIGATRAN ETEXILATE MESYLATE
     Indication: ATRIAL FIBRILLATION
     Dosage: 2 PILL
     Route: 048
     Dates: start: 201106, end: 20150430
  5. FENOFIBRATE. [Concomitant]
     Active Substance: FENOFIBRATE
  6. FOLIC ACID. [Concomitant]
     Active Substance: FOLIC ACID
  7. FOLIC ACID. [Concomitant]
     Active Substance: FOLIC ACID
  8. MULTIVITAMIN [Concomitant]
     Active Substance: VITAMINS
  9. AMLODIPINE BESYLATE. [Concomitant]
     Active Substance: AMLODIPINE BESYLATE
  10. KLOR-CON [Concomitant]
     Active Substance: POTASSIUM CHLORIDE
  11. VITAMIN B12 [Concomitant]
     Active Substance: CYANOCOBALAMIN
  12. VITAMIN D [Concomitant]
     Active Substance: CHOLECALCIFEROL

REACTIONS (4)
  - Dizziness [None]
  - Syncope [None]
  - Faeces discoloured [None]
  - Haemorrhage [None]
